FAERS Safety Report 21861502 (Version 1)
Quarter: 2023Q1

REPORT INFORMATION
  Report Type: Spontaneous
  Country: US (occurrence: US)
  Receive Date: 20230113
  Receipt Date: 20230113
  Transmission Date: 20230418
  Serious: Yes (Other)
  Sender: FDA-Public Use
  Company Number: US-IBSA PHARMA INC.-2022IBS000282

PATIENT

DRUGS (1)
  1. TIROSINT [Suspect]
     Active Substance: LEVOTHYROXINE SODIUM
     Indication: Thyroid hormone replacement therapy
     Dosage: AS DIRECTED
     Route: 048

REACTIONS (4)
  - Hyperthyroidism [Unknown]
  - Swelling [Unknown]
  - Blood thyroid stimulating hormone abnormal [Unknown]
  - Muscle spasms [Unknown]
